FAERS Safety Report 10521765 (Version 1)
Quarter: 2014Q4

REPORT INFORMATION
  Report Type: Spontaneous
  Country: JP (occurrence: None)
  Receive Date: 20141014
  Receipt Date: 20141014
  Transmission Date: 20150528
  Serious: Yes (Other)
  Sender: FDA-Public Use
  Company Number: 1477673

PATIENT
  Age: 62 Year
  Sex: Male

DRUGS (6)
  1. VANCOCIN [Suspect]
     Active Substance: VANCOMYCIN HYDROCHLORIDE
     Indication: ENDOCARDITIS
     Route: 042
  2. TAZOBACTAM (NOTSPECIFIC) [Suspect]
     Active Substance: TAZOBACTAM
     Indication: ENDOCARDITIS
  3. COTRIMOXAZOLE [Suspect]
     Active Substance: SULFAMETHOXAZOLE\TRIMETHOPRIM
     Indication: ENDOCARDITIS
  4. PIPERACILLIN (NOT SPECIFIC) [Suspect]
     Active Substance: PIPERACILLIN
     Indication: ENDOCARDITIS
  5. RIFAMPICIN (NON-SPECIFIC) [Suspect]
     Active Substance: RIFAMPIN
     Indication: ENDOCARDITIS
  6. VANCOMYCIN [Concomitant]
     Active Substance: VANCOMYCIN

REACTIONS (1)
  - Linear IgA disease [None]
